FAERS Safety Report 7617064-4 (Version None)
Quarter: 2011Q3

REPORT INFORMATION
  Report Type: 
  Country: None (occurrence: None)
  Receive Date: 20110718
  Receipt Date: 20110705
  Transmission Date: 20111222
  Serious: Yes (Hospitalization)
  Sender: FDA-Public Use
  Company Number: US-ELI_LILLY_AND_COMPANY-US200910004857

PATIENT
  Sex: Female
  Weight: 58.957 kg

DRUGS (19)
  1. FORTEO [Suspect]
     Dosage: 20 UG, QD
     Route: 058
  2. ASCORBIC ACID [Concomitant]
  3. FORTEO [Suspect]
     Dosage: 20 UG, DAILY (1/D)
     Route: 058
  4. HUMIRA [Concomitant]
     Indication: ARTHRITIS
  5. PLAVIX [Concomitant]
  6. METOPROLOL TARTRATE [Concomitant]
  7. IRON W/VITAMINS NOS [Concomitant]
  8. FORTEO [Suspect]
     Dosage: 20 UG, DAILY (1/D)
     Route: 058
  9. OMEPRAZOLE [Concomitant]
  10. AMLODIPINE [Concomitant]
  11. LEFLUNOMIDE [Concomitant]
  12. CALCIUM W/VITAMIN D NOS [Concomitant]
  13. FORTEO [Suspect]
     Dosage: 20 UG, DAILY (1/D)
     Route: 058
  14. CILOSTAZOL [Concomitant]
  15. EFFEXOR XR [Concomitant]
  16. ASPIRIN [Concomitant]
  17. FORTEO [Suspect]
     Indication: OSTEOPOROSIS
     Dosage: 20 UG, DAILY (1/D)
     Route: 058
     Dates: start: 20090901
  18. FOLIC ACID [Concomitant]
  19. ZOCOR [Concomitant]

REACTIONS (18)
  - COORDINATION ABNORMAL [None]
  - DIZZINESS [None]
  - ARTHRITIS [None]
  - RIB FRACTURE [None]
  - BALANCE DISORDER [None]
  - INJECTION SITE HAEMATOMA [None]
  - RADIUS FRACTURE [None]
  - HEAD INJURY [None]
  - TOOTH INFECTION [None]
  - JOINT SWELLING [None]
  - CONTUSION [None]
  - ARTHRALGIA [None]
  - STRESS [None]
  - BACK PAIN [None]
  - HEADACHE [None]
  - FALL [None]
  - TENDONITIS [None]
  - FINGER DEFORMITY [None]
